FAERS Safety Report 10052473 (Version 2)
Quarter: 2014Q2

REPORT INFORMATION
  Report Type: Spontaneous
  Country: US (occurrence: US)
  Receive Date: 20140402
  Receipt Date: 20140528
  Transmission Date: 20141212
  Serious: Yes (Hospitalization)
  Sender: FDA-Public Use
  Company Number: US-NOVOPROD-404648

PATIENT
  Age: 33 Year
  Sex: Male
  Weight: 82.54 kg

DRUGS (4)
  1. VICTOZA [Suspect]
     Indication: DIABETES MELLITUS
     Dosage: UNKNOWN
     Route: 058
     Dates: start: 20140301, end: 201403
  2. INVOKANA [Suspect]
     Indication: DIABETES MELLITUS
     Dosage: UNK
     Route: 048
     Dates: start: 20140228
  3. NOVOLOG [Concomitant]
     Indication: DIABETES MELLITUS
     Route: 058
  4. LANTUS [Concomitant]
     Indication: DIABETES MELLITUS
     Route: 058

REACTIONS (2)
  - Influenza [Recovered/Resolved]
  - Diabetic ketoacidosis [Recovered/Resolved]
